FAERS Safety Report 18330508 (Version 1)
Quarter: 2020Q3

REPORT INFORMATION
  Report Type: Spontaneous
  Country: FR (occurrence: FR)
  Receive Date: 20200930
  Receipt Date: 20200930
  Transmission Date: 20201103
  Serious: Yes (Hospitalization)
  Sender: FDA-Public Use
  Company Number: FR-TEVA-2020-FR-1832348

PATIENT
  Age: 71 Year
  Sex: Male
  Weight: 78 kg

DRUGS (9)
  1. ALLOPURINOL. [Concomitant]
     Active Substance: ALLOPURINOL
     Dosage: 100MG
  2. CLARITHROMYCINE ARROW [Suspect]
     Active Substance: CLARITHROMYCIN
     Indication: PULMONARY SEPSIS
     Dates: start: 20200121, end: 20200127
  3. CEFTRIAXONE MYLAN [Suspect]
     Active Substance: CEFTRIAXONE
     Indication: PULMONARY SEPSIS
     Dates: start: 20200121, end: 20200127
  4. HYDROCHLOROTHIAZIDE. [Concomitant]
     Active Substance: HYDROCHLOROTHIAZIDE
     Dosage: 12.5 MG (+16 MG CANDESARTAN)
     Route: 048
  5. DIFFU K [Concomitant]
     Active Substance: POTASSIUM CHLORIDE
     Dosage: 1DF
  6. CANDESARTAN CILEXETIL. [Concomitant]
     Active Substance: CANDESARTAN CILEXETIL
     Dosage: 16 MG (+12.5MG HCT)
  7. VERAPAMIL (CHLORHYDRATE DE) [Concomitant]
     Active Substance: VERAPAMIL HYDROCHLORIDE
     Dosage: 2DF
  8. AMIODARONE [Suspect]
     Active Substance: AMIODARONE
     Dosage: 100MG
     Route: 048
     Dates: start: 2016, end: 20200121
  9. KARDEGIC [Concomitant]
     Active Substance: ASPIRIN DL-LYSINE
     Dosage: 250MG

REACTIONS (1)
  - Tubulointerstitial nephritis [Not Recovered/Not Resolved]

NARRATIVE: CASE EVENT DATE: 20200127
